FAERS Safety Report 5213161-1 (Version None)
Quarter: 2007Q1

REPORT INFORMATION
  Report Type: 
  Country: None (occurrence: None)
  Receive Date: 20070119
  Receipt Date: 20070116
  Transmission Date: 20070707
  Serious: Yes (Hospitalization)
  Sender: FDA-Public Use
  Company Number: US-GLAXOSMITHKLINE-A0624833A

PATIENT
  Age: 39 Year
  Sex: Female

DRUGS (2)
  1. LAMICTAL [Suspect]
  2. LITHIUM CARBONATE [Concomitant]

REACTIONS (20)
  - AGITATION [None]
  - AMENORRHOEA [None]
  - ANXIETY [None]
  - COGNITIVE DISORDER [None]
  - COMMUNICATION DISORDER [None]
  - CONFUSIONAL STATE [None]
  - DEPRESSION [None]
  - DISTURBANCE IN ATTENTION [None]
  - DYSARTHRIA [None]
  - HEADACHE [None]
  - HORMONE LEVEL ABNORMAL [None]
  - HOT FLUSH [None]
  - IRRITABILITY [None]
  - MENOPAUSAL SYMPTOMS [None]
  - MENSTRUATION IRREGULAR [None]
  - MENTAL IMPAIRMENT [None]
  - METRORRHAGIA [None]
  - PREMENSTRUAL SYNDROME [None]
  - SUICIDAL IDEATION [None]
  - VOMITING [None]
